FAERS Safety Report 26121935 (Version 1)
Quarter: 2025Q4

REPORT INFORMATION
  Report Type: Spontaneous
  Country: US (occurrence: US)
  Receive Date: 20251204
  Receipt Date: 20251204
  Transmission Date: 20260118
  Serious: Yes (Other)
  Sender: PFIZER
  Company Number: US-PFIZER INC-PV202500139396

PATIENT
  Age: 77 Year
  Sex: Female
  Weight: 45.805 kg

DRUGS (17)
  1. ELREXFIO [Suspect]
     Active Substance: ELRANATAMAB-BCMM
     Indication: Plasma cell myeloma
     Dosage: 12 MG SQ (SUBCUTANEOUS) D1
     Route: 058
  2. ELREXFIO [Suspect]
     Active Substance: ELRANATAMAB-BCMM
     Indication: Head injury
     Dosage: 32 MG SQ (SUBCUTANEOUS) D4
     Route: 058
  3. ELREXFIO [Suspect]
     Active Substance: ELRANATAMAB-BCMM
     Indication: Weight decreased
     Dosage: 76 MG SQ D8 Q8D X 1 F/B ELREXFIO 76 MG SQ D1 Q7D X 23 F/B ELREXFIO 76 MG SQ D1 Q14DX12 (REMS)(1:4)
     Route: 058
  4. ELREXFIO [Suspect]
     Active Substance: ELRANATAMAB-BCMM
     Indication: Nodule
  5. ZOFRAN [Concomitant]
     Active Substance: ONDANSETRON HYDROCHLORIDE
     Dosage: DOSE 8-16 MG ORALLY DAILY
     Route: 048
  6. ZYLOPRIM [Concomitant]
     Active Substance: ALLOPURINOL
     Dosage: 300 MG, AS NEEDED (TAKE 1 P.O. DAILY)
     Route: 048
  7. VALTREX [Concomitant]
     Active Substance: VALACYCLOVIR HYDROCHLORIDE
     Dosage: 500 MG, 2X/DAY (TAKE WITH OR WITHOUT FOOD)
     Route: 048
  8. BACTRIM DS [Concomitant]
     Active Substance: SULFAMETHOXAZOLE\TRIMETHOPRIM
     Dosage: UNK, 1X/DAY (TAKE ONE TABLET ON MONDAY, WEDNESDAY, AND FRIDAY)
     Route: 048
  9. ACTEMRA [Concomitant]
     Active Substance: TOCILIZUMAB
     Dosage: 372 MG (8 MG/KG, AS NEEDED)
     Route: 042
  10. LORAZEPAM [Concomitant]
     Active Substance: LORAZEPAM
     Dosage: 0.5 MG
     Route: 042
  11. DEXAMETHASONE [Concomitant]
     Active Substance: DEXAMETHASONE
     Indication: Premedication
     Dosage: 16 MG (PRN FEVER), TAKE WITH FOOD
     Route: 048
  12. DEXAMETHASONE [Concomitant]
     Active Substance: DEXAMETHASONE
     Dosage: 20 MG
     Route: 048
  13. DEXAMETHASONE [Concomitant]
     Active Substance: DEXAMETHASONE
     Dosage: 20 MG, ADMINISTER IN 50 ML OVER 20 MINS
     Route: 042
  14. TYLENOL [Concomitant]
     Active Substance: ACETAMINOPHEN
     Indication: Premedication
     Dosage: 650 MG, 24-HOUR MAXIMUM DOSE IS 4000 MG
     Route: 048
  15. DIPHENHYDRAMINE [Concomitant]
     Active Substance: DIPHENHYDRAMINE
     Indication: Premedication
     Dosage: 25 MG, ADJUSTMENT: 0 MG (-100%), 50 ML NS OVER 20 MINS
     Route: 042
  16. DIPHENHYDRAMINE [Concomitant]
     Active Substance: DIPHENHYDRAMINE
     Dosage: 25 MG
     Route: 048
  17. SODIUM CHLORIDE [Concomitant]
     Active Substance: SODIUM CHLORIDE
     Indication: Dehydration
     Dosage: 1000 ML
     Route: 042

REACTIONS (3)
  - Cytokine release syndrome [Unknown]
  - Blood creatinine increased [Unknown]
  - Creatinine renal clearance decreased [Unknown]

NARRATIVE: CASE EVENT DATE: 20250331
